FAERS Safety Report 12760831 (Version 1)
Quarter: 2016Q3

REPORT INFORMATION
  Report Type: Report from Study
  Country: AR (occurrence: AR)
  Receive Date: 20160919
  Receipt Date: 20160919
  Transmission Date: 20161109
  Serious: Yes (Other)
  Sender: FDA-Public Use
  Company Number: AR-ELI_LILLY_AND_COMPANY-AR201608011438

PATIENT
  Age: 41 Year
  Sex: Female

DRUGS (2)
  1. CETUXIMAB [Suspect]
     Active Substance: CETUXIMAB
     Indication: HEAD AND NECK CANCER
     Dosage: UNK, UNKNOWN
     Route: 065
     Dates: start: 20151217
  2. PACLITAXEL. [Concomitant]
     Active Substance: PACLITAXEL
     Indication: HEAD AND NECK CANCER
     Dosage: 80 MG/M2, UNKNOWN
     Route: 065

REACTIONS (7)
  - Rash pustular [Unknown]
  - Skin infection [Unknown]
  - Dermatitis acneiform [Unknown]
  - Eye infection staphylococcal [Unknown]
  - Blister [Unknown]
  - Impetigo [Unknown]
  - Scab [Unknown]

NARRATIVE: CASE EVENT DATE: 201605
